FAERS Safety Report 10568512 (Version 2)
Quarter: 2014Q4

REPORT INFORMATION
  Report Type: Spontaneous
  Country: IT (occurrence: IT)
  Receive Date: 20141106
  Receipt Date: 20141106
  Transmission Date: 20150529
  Serious: No
  Sender: FDA-Public Use
  Company Number: IT-JNJFOC-20140701503

PATIENT
  Age: 17 Year
  Sex: Female

DRUGS (4)
  1. FLEBOCORTID [Concomitant]
     Indication: PREMEDICATION
     Route: 042
     Dates: start: 20140618
  2. FLEBOCORTID [Concomitant]
     Indication: PREMEDICATION
     Route: 042
     Dates: start: 20140423
  3. FLEBOCORTID [Concomitant]
     Indication: PREMEDICATION
     Route: 042
     Dates: start: 20140507
  4. INFLIXIMAB, RECOMBINANT [Suspect]
     Active Substance: INFLIXIMAB
     Indication: CROHN^S DISEASE
     Route: 042
     Dates: start: 20140423, end: 20140618

REACTIONS (2)
  - Infusion related reaction [Recovered/Resolved]
  - Anaphylactic reaction [Recovered/Resolved]

NARRATIVE: CASE EVENT DATE: 20140618
